FAERS Safety Report 11061037 (Version 1)
Quarter: 2015Q2

REPORT INFORMATION
  Report Type: Spontaneous
  Country: CA (occurrence: CA)
  Receive Date: 20150424
  Receipt Date: 20150424
  Transmission Date: 20150821
  Serious: Yes (Hospitalization)
  Sender: FDA-Public Use
  Company Number: CA-ROCHE-1566285

PATIENT
  Age: 80 Year
  Sex: Male

DRUGS (3)
  1. MYCOPHENOLATE MOFETIL. [Interacting]
     Active Substance: MYCOPHENOLATE MOFETIL
     Route: 065
  2. PREDNISONE. [Interacting]
     Active Substance: PREDNISONE
     Indication: PEMPHIGUS
     Route: 065
  3. MYCOPHENOLATE MOFETIL. [Suspect]
     Active Substance: MYCOPHENOLATE MOFETIL
     Indication: PEMPHIGUS
     Route: 065

REACTIONS (5)
  - Vision blurred [Recovering/Resolving]
  - Drug interaction [Unknown]
  - Necrotising retinitis [Recovering/Resolving]
  - Cytomegalovirus chorioretinitis [Recovering/Resolving]
  - Visual acuity reduced [Recovering/Resolving]
